FAERS Safety Report 9029068 (Version 1)
Quarter: 2013Q1

REPORT INFORMATION
  Report Type: Report from Study
  Country: DE (occurrence: DE)
  Receive Date: 20130122
  Receipt Date: 20130122
  Transmission Date: 20140127
  Serious: Yes (Other)
  Sender: FDA-Public Use
  Company Number: DE-ROCHE-1180498

PATIENT
  Age: 58 Year
  Sex: Female
  Weight: 48 kg

DRUGS (6)
  1. TOCILIZUMAB [Suspect]
     Indication: RHEUMATOID ARTHRITIS
     Route: 042
     Dates: start: 20111004
  2. TOCILIZUMAB [Suspect]
     Route: 042
     Dates: start: 20110906
  3. TOCILIZUMAB [Suspect]
     Route: 042
     Dates: start: 20111101
  4. TOCILIZUMAB [Suspect]
     Route: 042
     Dates: start: 20111201
  5. CORTICOSTEROIDS (UNK INGREDIENTS) [Concomitant]
     Indication: RHEUMATOID ARTHRITIS
     Route: 048
  6. ALENDRONAT [Concomitant]
     Route: 048

REACTIONS (2)
  - Sinus bradycardia [Recovered/Resolved]
  - Cardiovascular disorder [Recovered/Resolved]
